FAERS Safety Report 16462547 (Version 2)
Quarter: 2019Q3

REPORT INFORMATION
  Report Type: Spontaneous
  Country: US (occurrence: US)
  Receive Date: 20190621
  Receipt Date: 20190814
  Transmission Date: 20191004
  Serious: No
  Sender: FDA-Public Use
  Company Number: US-LEO PHARMA-319319

PATIENT
  Sex: Female

DRUGS (1)
  1. PICATO [Suspect]
     Active Substance: INGENOL MEBUTATE
     Indication: ACTINIC KERATOSIS
     Dosage: ONCE DAILY
     Route: 061
     Dates: start: 20190411, end: 20190413

REACTIONS (3)
  - Application site exfoliation [Recovered/Resolved]
  - Application site discharge [Recovered/Resolved]
  - Application site erythema [Recovering/Resolving]
